FAERS Safety Report 7689654-4 (Version None)
Quarter: 2011Q3

REPORT INFORMATION
  Report Type: 
  Country: None (occurrence: None)
  Receive Date: 20110817
  Receipt Date: 20110810
  Transmission Date: 20111222
  Serious: Yes (Other)
  Sender: FDA-Public Use
  Company Number: US-ROCHE-796668

PATIENT
  Sex: Female

DRUGS (1)
  1. BONIVA [Suspect]
     Indication: OSTEOPOROSIS
     Dosage: FREQUENCY MONTHLY
     Route: 065
     Dates: start: 20080101, end: 20110601

REACTIONS (4)
  - PAIN [None]
  - IMPAIRED WORK ABILITY [None]
  - SPINAL FRACTURE [None]
  - BONE DISORDER [None]
